FAERS Safety Report 24093535 (Version 2)
Quarter: 2024Q3

REPORT INFORMATION
  Report Type: Spontaneous
  Country: TW (occurrence: TW)
  Receive Date: 20240715
  Receipt Date: 20240903
  Transmission Date: 20241017
  Serious: Yes (Other)
  Sender: MERCK
  Company Number: TW-009507513-2407TWN008648

PATIENT
  Age: 37 Year
  Sex: Male

DRUGS (4)
  1. PEMBROLIZUMAB [Suspect]
     Active Substance: PEMBROLIZUMAB
     Indication: Adenocarcinoma
     Dosage: UNK
     Dates: start: 20210924
  2. ALIMTA [Suspect]
     Active Substance: PEMETREXED DISODIUM
     Indication: Adenocarcinoma
     Dosage: UNK
     Dates: start: 20210924
  3. CISPLATIN [Suspect]
     Active Substance: CISPLATIN
     Indication: Adenocarcinoma
     Dosage: UNK
     Dates: start: 20210924
  4. BEVACIZUMAB [Suspect]
     Active Substance: BEVACIZUMAB
     Indication: Adenocarcinoma
     Dosage: UNK
     Dates: start: 20210924

REACTIONS (3)
  - Neuropathy peripheral [Unknown]
  - Necrotic lymphadenopathy [Unknown]
  - Product use in unapproved indication [Unknown]

NARRATIVE: CASE EVENT DATE: 20210924
